FAERS Safety Report 4423207-6 (Version None)
Quarter: 2004Q3

REPORT INFORMATION
  Report Type: 
  Country: None (occurrence: None)
  Receive Date: 20040809
  Receipt Date: 20040809
  Transmission Date: 20050211
  Serious: Yes (Other)
  Sender: FDA-Public Use
  Company Number: None

PATIENT
  Age: 39 Year
  Sex: Female
  Weight: 83.9154 kg

DRUGS (9)
  1. CELEBREX [Suspect]
     Indication: BACK PAIN
     Dosage: 3 DAY
     Dates: start: 20021015, end: 20030915
  2. CELEBREX [Suspect]
     Indication: MYOFASCIAL PAIN SYNDROME
     Dosage: 3 DAY
     Dates: start: 20021015, end: 20030915
  3. CELEBREX [Suspect]
     Indication: NECK PAIN
     Dosage: 3 DAY
     Dates: start: 20021015, end: 20030915
  4. CELEBREX [Suspect]
     Indication: ROAD TRAFFIC ACCIDENT
     Dosage: 3 DAY
     Dates: start: 20021015, end: 20030915
  5. BEXTRA [Suspect]
     Indication: BACK PAIN
  6. BEXTRA [Suspect]
     Indication: MYOFASCIAL PAIN SYNDROME
  7. BEXTRA [Suspect]
     Indication: NECK PAIN
  8. BEXTRA [Suspect]
     Indication: ROAD TRAFFIC ACCIDENT
  9. IBUPROPHEN [Concomitant]

REACTIONS (4)
  - DYSGRAPHIA [None]
  - HALLUCINATION [None]
  - MENTAL DISORDER [None]
  - PARANOIA [None]
